FAERS Safety Report 20738307 (Version 1)
Quarter: 2022Q2

REPORT INFORMATION
  Report Type: Spontaneous
  Country: US (occurrence: US)
  Receive Date: 20220422
  Receipt Date: 20220422
  Transmission Date: 20220721
  Serious: Yes (Other)
  Sender: FDA-Public Use
  Company Number: US-BRISTOL-MYERS SQUIBB COMPANY-2022-022594

PATIENT
  Age: 68 Year
  Sex: Male
  Weight: 78.47 kg

DRUGS (1)
  1. REVLIMID [Suspect]
     Active Substance: LENALIDOMIDE
     Indication: Plasma cell myeloma
     Dosage: DAILY 21 DAYS ON 7D OFF
     Route: 048
     Dates: start: 20220322, end: 20220330

REACTIONS (5)
  - Swelling [Recovering/Resolving]
  - Dizziness [Recovering/Resolving]
  - Deafness [Recovering/Resolving]
  - Headache [Recovering/Resolving]
  - Asthenia [Recovering/Resolving]
